FAERS Safety Report 7982089-6 (Version None)
Quarter: 2011Q4

REPORT INFORMATION
  Report Type: 
  Country: None (occurrence: None)
  Receive Date: 20111215
  Receipt Date: 20111213
  Transmission Date: 20120403
  Serious: Yes (Other)
  Sender: FDA-Public Use
  Company Number: JP-PFIZER INC-2011166483

PATIENT
  Age: 73 Year
  Sex: Female
  Weight: 51.3 kg

DRUGS (6)
  1. CANDESARTAN CILEXETIL [Suspect]
     Dosage: UNK
  2. LYRICA [Suspect]
     Indication: SPINAL OSTEOARTHRITIS
  3. LYRICA [Suspect]
     Indication: PERIARTHRITIS
     Dosage: 75 MG, 2X/DAY
     Route: 048
     Dates: start: 20110706, end: 20110719
  4. CELECOXIB [Suspect]
     Indication: SPINAL OSTEOARTHRITIS
  5. CELECOXIB [Suspect]
     Indication: PERIARTHRITIS
     Dosage: 100 MG, 2X/DAY
     Route: 048
     Dates: start: 20110706, end: 20110719
  6. LIPITOR [Suspect]
     Dosage: UNK

REACTIONS (5)
  - DIZZINESS [None]
  - PHARYNGEAL OEDEMA [None]
  - OEDEMA MOUTH [None]
  - RASH [None]
  - DYSPNOEA [None]
